FAERS Safety Report 8529945-8 (Version None)
Quarter: 2012Q3

REPORT INFORMATION
  Report Type: 
  Country: None (occurrence: None)
  Receive Date: 20120723
  Receipt Date: 20120713
  Transmission Date: 20120928
  Serious: Yes (Other)
  Sender: FDA-Public Use
  Company Number: DE-UCBSA-061193

PATIENT
  Age: 55 Year
  Sex: Female
  Weight: 66 kg

DRUGS (3)
  1. CIMZIA [Suspect]
     Dosage: SINGLE DOSE:200 MG
     Route: 058
     Dates: start: 20120323, end: 20120420
  2. CIMZIA [Suspect]
     Indication: RHEUMATOID ARTHRITIS
     Dosage: THE INJECTIONS  0.2.4 WERE WELL TOLERATED
     Route: 058
     Dates: start: 20120210, end: 20120323
  3. PREDNISOLONE [Concomitant]
     Indication: RHEUMATOID ARTHRITIS
     Route: 048
     Dates: start: 20000101

REACTIONS (5)
  - PETECHIAE [None]
  - URTICARIA [None]
  - OFF LABEL USE [None]
  - ECZEMA [None]
  - HAEMATOMA [None]
